FAERS Safety Report 19804333 (Version 1)
Quarter: 2021Q3

REPORT INFORMATION
  Report Type: Spontaneous
  Country: US (occurrence: US)
  Receive Date: 20210908
  Receipt Date: 20210908
  Transmission Date: 20211014
  Serious: No
  Sender: FDA-Public Use
  Company Number: US-FARMAPROD-202105-0730

PATIENT
  Sex: Male

DRUGS (14)
  1. VYTORIN [Concomitant]
     Active Substance: EZETIMIBE\SIMVASTATIN
     Dosage: 10?100 MG
  2. SYSTANE (HYPROMELLOSE 2910 (4000 MPA.S)) [Concomitant]
     Active Substance: HYPROMELLOSE 2910 (4000 MPA.S)
     Dosage: 0.3%?0.4% DROPERETTE
  3. GABAPENTIN. [Concomitant]
     Active Substance: GABAPENTIN
  4. LEVOTHYROXINE. [Concomitant]
     Active Substance: LEVOTHYROXINE
  5. RAMIPRIL. [Concomitant]
     Active Substance: RAMIPRIL
  6. RANEXA [Concomitant]
     Active Substance: RANOLAZINE
     Dosage: EXTENDED RELEASE TABLET
  7. PENTOXIFYLLINE. [Concomitant]
     Active Substance: PENTOXIFYLLINE
     Dosage: EXTENDED RELEASE TABLET
  8. APIDRA [Concomitant]
     Active Substance: INSULIN GLULISINE
     Dosage: 100 ML VIAL
  9. OXERVATE [Suspect]
     Active Substance: CENEGERMIN-BKBJ
     Indication: NEUROTROPHIC KERATOPATHY
     Route: 047
     Dates: start: 20210504
  10. VITAMIN D2 [Concomitant]
     Active Substance: ERGOCALCIFEROL
  11. RISEDRONATE SODIUM. [Concomitant]
     Active Substance: RISEDRONATE SODIUM
  12. LEVOFLOXACIN. [Concomitant]
     Active Substance: LEVOFLOXACIN
  13. ISOSORBIDE MONONITRATE. [Concomitant]
     Active Substance: ISOSORBIDE MONONITRATE
     Dosage: EXTENDED RELEASE
  14. ELIQUIS [Concomitant]
     Active Substance: APIXABAN

REACTIONS (1)
  - Product administration error [Unknown]
